FAERS Safety Report 24986257 (Version 3)
Quarter: 2025Q2

REPORT INFORMATION
  Report Type: Spontaneous
  Country: AE (occurrence: AE)
  Receive Date: 20250219
  Receipt Date: 20250531
  Transmission Date: 20250716
  Serious: Yes (Life-Threatening, Hospitalization)
  Sender: STEMLINE THERAPEUTICS
  Company Number: AE-STEMLINE THERAPEUTICS, INC-2025-STML-AE000553

PATIENT

DRUGS (1)
  1. ELACESTRANT [Suspect]
     Active Substance: ELACESTRANT
     Indication: Breast cancer metastatic
     Dosage: 345 MG, DAILY
     Route: 065
     Dates: start: 20241015, end: 20250203

REACTIONS (1)
  - Neurotoxicity [Not Recovered/Not Resolved]

NARRATIVE: CASE EVENT DATE: 20250203
